FAERS Safety Report 15398177 (Version 1)
Quarter: 2018Q4

REPORT INFORMATION
  Report Type: Spontaneous
  Country: ES (occurrence: ES)
  Receive Date: 20180918
  Receipt Date: 20180918
  Transmission Date: 20190204
  Serious: Yes (Other)
  Sender: FDA-Public Use
  Company Number: ES-TEVA-2018-ES-955708

PATIENT
  Age: 46 Year
  Sex: Male

DRUGS (2)
  1. TACROLIMUS (2694A) [Suspect]
     Active Substance: TACROLIMUS
     Dates: start: 2018
  2. JUGO DE ALOE VERA [Interacting]
     Active Substance: ALOE VERA LEAF
     Dates: start: 201807, end: 201808

REACTIONS (3)
  - Immunosuppressant drug level decreased [Recovered/Resolved]
  - Food interaction [Recovered/Resolved]
  - Drug interaction [Unknown]

NARRATIVE: CASE EVENT DATE: 201807
